FAERS Safety Report 6318583-3 (Version None)
Quarter: 2009Q3

REPORT INFORMATION
  Report Type: 
  Country: None (occurrence: None)
  Receive Date: 20090821
  Receipt Date: 20090818
  Transmission Date: 20100115
  Serious: Yes (Death, Other)
  Sender: FDA-Public Use
  Company Number: PHHY2009JP07813

PATIENT
  Age: 86 Year
  Sex: Female
  Weight: 40 kg

DRUGS (12)
  1. DIOVAN [Suspect]
     Indication: HYPERTENSION
     Dosage: 80 MG, QD
     Route: 048
     Dates: start: 20071213, end: 20081010
  2. ADALAT CC [Concomitant]
     Indication: HYPERTENSION
     Dosage: UNK
     Route: 048
     Dates: start: 20080221, end: 20081010
  3. AMLODIPINE [Concomitant]
     Dosage: UNK
     Route: 048
     Dates: end: 20080220
  4. LASIX [Concomitant]
     Dosage: UNK
     Route: 048
     Dates: start: 20080304, end: 20081024
  5. RINDERON [Concomitant]
     Dosage: UNK
     Route: 048
     Dates: end: 20081024
  6. MEVALOTIN [Concomitant]
     Dosage: UNK
     Route: 048
     Dates: end: 20080918
  7. UNASYN [Concomitant]
     Dosage: UNK
     Route: 048
     Dates: start: 20080904, end: 20080910
  8. KLARICID [Concomitant]
     Dosage: UNK
     Route: 048
     Dates: start: 20080904, end: 20081024
  9. CEFTAZIDIME [Concomitant]
     Dosage: UNK
     Route: 042
     Dates: start: 20080915, end: 20080924
  10. CLINDAMYCIN PHOSPHATE [Concomitant]
     Dosage: UNK
     Route: 042
     Dates: start: 20080918, end: 20080924
  11. ALBUMINAR [Concomitant]
     Dosage: UNK
     Route: 042
     Dates: start: 20080916, end: 20080917
  12. VANCOMYCIN [Concomitant]
     Dosage: UNK
     Route: 042
     Dates: start: 20080918, end: 20080924

REACTIONS (8)
  - BLOOD POTASSIUM INCREASED [None]
  - CONDITION AGGRAVATED [None]
  - DECREASED APPETITE [None]
  - HYPOALBUMINAEMIA [None]
  - INFECTION [None]
  - NUTRITIONAL CONDITION ABNORMAL [None]
  - PNEUMONIA [None]
  - RENAL FAILURE CHRONIC [None]
